FAERS Safety Report 12377442 (Version 1)
Quarter: 2016Q2

REPORT INFORMATION
  Report Type: Spontaneous
  Country: FR (occurrence: FR)
  Receive Date: 20160517
  Receipt Date: 20160517
  Transmission Date: 20160815
  Serious: Yes (Other)
  Sender: FDA-Public Use
  Company Number: FR-UCBSA-2016017663

PATIENT
  Age: 0 Year
  Sex: Male

DRUGS (1)
  1. KEPPRA [Suspect]
     Active Substance: LEVETIRACETAM
     Indication: EPILEPSY
     Dosage: 750 MG, 2X/DAY (BID)
     Route: 064
     Dates: start: 20150705, end: 20160320

REACTIONS (5)
  - Neonatal respiratory distress syndrome [Recovered/Resolved]
  - Pulmonary arterial hypertension [Recovered/Resolved]
  - Premature baby [Unknown]
  - Foetal exposure during pregnancy [Unknown]
  - Respiratory distress [Recovered/Resolved]

NARRATIVE: CASE EVENT DATE: 20150705
